FAERS Safety Report 6714321-0 (Version None)
Quarter: 2010Q2

REPORT INFORMATION
  Report Type: 
  Country: None (occurrence: None)
  Receive Date: 20100506
  Receipt Date: 20100426
  Transmission Date: 20101027
  Serious: Yes (Other)
  Sender: FDA-Public Use
  Company Number: AT-ELI_LILLY_AND_COMPANY-AT201003004533

PATIENT
  Age: 23 Year
  Sex: Female

DRUGS (3)
  1. ZYPREXA [Suspect]
     Indication: PSYCHOTIC DISORDER
     Dosage: 5 MG, 2/D
     Route: 048
     Dates: start: 20090901
  2. VALPROIC ACID [Concomitant]
     Indication: EPILEPSY
     Dosage: 250 MG, DAILY (1/D)
     Dates: start: 19990101
  3. LAMOTRIGINE [Concomitant]
     Indication: EPILEPSY
     Dosage: 100 MG, DAILY (1/D)
     Dates: start: 19990101

REACTIONS (1)
  - EPILEPSY [None]
